FAERS Safety Report 16774924 (Version 6)
Quarter: 2020Q4

REPORT INFORMATION
  Report Type: Spontaneous
  Country: GB (occurrence: GB)
  Receive Date: 20190905
  Receipt Date: 20201113
  Transmission Date: 20210113
  Serious: Yes (Other)
  Sender: FDA-Public Use
  Company Number: GB-AUROBINDO-AUR-APL-2019-056784

PATIENT
  Age: 40 Year
  Sex: Female
  Weight: 60 kg

DRUGS (2)
  1. CETIRIZINE [Suspect]
     Active Substance: CETIRIZINE HYDROCHLORIDE
     Indication: FOOD ALLERGY
     Dosage: 10 MILLIGRAM, ONCE A DAY
     Route: 065
     Dates: start: 201702
  2. CETIRIZINE [Suspect]
     Active Substance: CETIRIZINE HYDROCHLORIDE
     Indication: ORAL ALLERGY SYNDROME
     Dosage: 2 DOSAGE FORM (TOTAL)
     Route: 065
     Dates: start: 201702

REACTIONS (4)
  - Off label use [Unknown]
  - Acute generalised exanthematous pustulosis [Recovered/Resolved with Sequelae]
  - Overdose [Unknown]
  - Type IV hypersensitivity reaction [Recovered/Resolved]
